FAERS Safety Report 8185700-2 (Version None)
Quarter: 2012Q1

REPORT INFORMATION
  Report Type: 
  Country: None (occurrence: None)
  Receive Date: 20120305
  Receipt Date: 20120301
  Transmission Date: 20120608
  Serious: Yes (Death, Hospitalization, Other)
  Sender: FDA-Public Use
  Company Number: BR-ABBOTT-12P-020-0910101-00

PATIENT
  Sex: Female
  Weight: 51 kg

DRUGS (4)
  1. CAPTOPRIL [Concomitant]
     Indication: HYPERTENSION
  2. HUMIRA [Suspect]
     Indication: RHEUMATOID ARTHRITIS
     Route: 058
  3. METICORTEN [Concomitant]
     Indication: PRODUCT USED FOR UNKNOWN INDICATION
  4. FOLIC ACID [Concomitant]
     Indication: ARTHRITIS

REACTIONS (16)
  - DISSEMINATED TUBERCULOSIS [None]
  - ASTHENIA [None]
  - TREMOR [None]
  - WEIGHT DECREASED [None]
  - DYSPNOEA [None]
  - UTERINE INFECTION [None]
  - COMA [None]
  - DECREASED APPETITE [None]
  - FATIGUE [None]
  - ANAEMIA [None]
  - SEPSIS [None]
  - PYREXIA [None]
  - OVARIAN INFECTION [None]
  - DEVICE RELATED INFECTION [None]
  - BRONCHOPNEUMONIA [None]
  - HYPOPHAGIA [None]
